FAERS Safety Report 24530997 (Version 2)
Quarter: 2024Q4

REPORT INFORMATION
  Report Type: Report from Study
  Country: ES (occurrence: ES)
  Receive Date: 20241021
  Receipt Date: 20241023
  Transmission Date: 20250114
  Serious: Yes (Death, Hospitalization)
  Sender: ABBVIE
  Company Number: ES-ABBVIE-5968225

PATIENT
  Sex: Female

DRUGS (1)
  1. CARBIDOPA\LEVODOPA [Suspect]
     Active Substance: CARBIDOPA\LEVODOPA
     Indication: Parkinson^s disease
     Dosage: 240 MG/ML + 12 MG/ML. LAST ADMIN DATE 2024
     Route: 058
     Dates: start: 20240109

REACTIONS (2)
  - Intestinal obstruction [Fatal]
  - Unevaluable event [Unknown]

NARRATIVE: CASE EVENT DATE: 20240101
